FAERS Safety Report 9392155 (Version 3)
Quarter: 2013Q4

REPORT INFORMATION
  Report Type: Spontaneous
  Country: JP (occurrence: JP)
  Receive Date: 20130709
  Receipt Date: 20131030
  Transmission Date: 20140711
  Serious: Yes (Hospitalization)
  Sender: FDA-Public Use
  Company Number: JP-AMGEN-JPNSP2013047156

PATIENT
  Age: 63 Year
  Sex: Female
  Weight: 55 kg

DRUGS (40)
  1. VECTIBIX [Suspect]
     Indication: COLON CANCER
     Dosage: 321 MG, Q2WK
     Route: 041
     Dates: start: 20130520, end: 20130520
  2. VECTIBIX [Suspect]
     Dosage: 327 MG, Q2WK
     Route: 041
     Dates: start: 20130603, end: 20130603
  3. VECTIBIX [Suspect]
     Dosage: 321 MG, Q2WK
     Route: 041
     Dates: start: 20130710
  4. 5-FU /00098801/ [Suspect]
     Indication: COLON CANCER
     Dosage: 588 MG, Q2WK
     Route: 040
     Dates: start: 20130520, end: 20130520
  5. 5-FU /00098801/ [Suspect]
     Dosage: 3500 MG, Q2WK
     Route: 041
     Dates: start: 20130520, end: 20130520
  6. 5-FU /00098801/ [Suspect]
     Dosage: 592 MG, Q2WK
     Route: 040
     Dates: start: 20130603, end: 20130603
  7. 5-FU /00098801/ [Suspect]
     Dosage: 3552 MG, Q2WK
     Route: 041
     Dates: start: 20130603, end: 20130603
  8. 5-FU /00098801/ [Suspect]
     Dosage: 588 MG, Q2WK
     Route: 040
     Dates: start: 20130710
  9. 5-FU /00098801/ [Suspect]
     Dosage: 3500 MG, Q2WK
     Route: 041
     Dates: start: 20130710
  10. ELPLAT [Concomitant]
     Indication: COLON CANCER
     Dosage: 100 MG, Q2WK
     Route: 041
     Dates: start: 20130520, end: 20130603
  11. ELPLAT [Concomitant]
     Dosage: 100 MG, Q2WK
     Route: 041
     Dates: start: 20130710
  12. ELPLAT [Concomitant]
     Route: 041
     Dates: start: 20130710
  13. LEVOFOLINATE [Concomitant]
     Indication: COLON CANCER
     Dosage: 290 MG, Q2WK
     Route: 041
     Dates: start: 20130520, end: 20130520
  14. LEVOFOLINATE [Concomitant]
     Dosage: 295 MG, Q2WK
     Route: 041
     Dates: start: 20130603, end: 20130603
  15. LEVOFOLINATE [Concomitant]
     Dosage: 290 MG, Q2WK
     Route: 041
     Dates: start: 20130710
  16. ALOXI [Concomitant]
     Dosage: 0.75 MG, Q2WK
     Route: 041
     Dates: start: 20130520
  17. DEXART [Concomitant]
     Indication: PROPHYLAXIS OF NAUSEA AND VOMITING
     Dosage: 6.6 MG, Q2WK
     Route: 041
     Dates: start: 20130520
  18. EMEND                              /01627301/ [Concomitant]
     Indication: PROPHYLAXIS OF NAUSEA AND VOMITING
     Dosage: UNK UNK, Q2WK
     Route: 041
     Dates: start: 20130520
  19. EMEND                              /01627301/ [Concomitant]
     Dosage: 50 UNK, Q2WK
     Route: 041
  20. MINOMYCIN [Concomitant]
     Dosage: 1 DF, BID
     Route: 048
  21. MAGMITT [Concomitant]
     Dosage: 1 DF, TID
     Route: 048
  22. MAGMITT [Concomitant]
     Dosage: 2 DF, BID
     Route: 048
  23. MEVALOTIN [Concomitant]
     Dosage: 10 MG, QD
     Route: 048
  24. ALTAT [Concomitant]
     Dosage: 75 MG, BID
     Route: 048
  25. ALLOZYM [Concomitant]
     Dosage: 100 MG, QD
     Route: 048
  26. DIOVAN [Concomitant]
     Dosage: 80 MG, QD
     Route: 048
  27. THYRADIN-S [Concomitant]
     Dosage: 25 MG, QD
     Route: 048
  28. FERROMIA [Concomitant]
     Dosage: 100 MG, BID
     Route: 048
  29. THEODUR [Concomitant]
     Dosage: 100 MG, BID
     Route: 048
  30. SINGULAIR [Concomitant]
     Dosage: 10 MG, QD
     Route: 048
  31. PLAVIX [Concomitant]
     Dosage: 75 MG, QD
     Route: 048
  32. ARGAMATE [Concomitant]
     Dosage: 25 G, QD
     Route: 048
  33. ADOAIR [Concomitant]
     Dosage: 250 MUG, BID
     Route: 055
  34. EQUA [Concomitant]
     Dosage: 50 MG, QD
     Route: 048
  35. GLUFAST [Concomitant]
     Dosage: 1 DF, BID
     Route: 048
  36. GLUFAST [Concomitant]
     Dosage: 3 DF, UNK
     Route: 048
  37. ERYTHROCIN                         /00020904/ [Concomitant]
     Dosage: 2 DF, BID
     Route: 048
  38. MUCODYNE [Concomitant]
     Dosage: 1 DF, TID
     Route: 048
  39. ASVERIN                            /00465502/ [Concomitant]
     Dosage: 1 DF, TID
     Route: 048
  40. MUCOSOLVAN [Concomitant]
     Dosage: 1 DF, TID
     Route: 048

REACTIONS (3)
  - Diarrhoea [Recovering/Resolving]
  - Hypomagnesaemia [Recovered/Resolved]
  - Nausea [Recovering/Resolving]
